FAERS Safety Report 5575592-X (Version None)
Quarter: 2007Q4

REPORT INFORMATION
  Report Type: 
  Country: None (occurrence: None)
  Receive Date: 20071226
  Receipt Date: 20071207
  Transmission Date: 20080405
  Serious: Yes (Life-Threatening, Hospitalization)
  Sender: FDA-Public Use
  Company Number: 168

PATIENT
  Sex: Female
  Weight: 127.0072 kg

DRUGS (2)
  1. FAZACLO ODT [Suspect]
     Indication: BIPOLAR DISORDER
     Dosage: 300 MG PO DAILY
     Route: 048
     Dates: start: 20071113, end: 20071127
  2. FAZACLO ODT [Suspect]
     Indication: SCHIZOAFFECTIVE DISORDER
     Dosage: 300 MG PO DAILY
     Route: 048
     Dates: start: 20071113, end: 20071127

REACTIONS (6)
  - BLOOD PRESSURE INADEQUATELY CONTROLLED [None]
  - CARDIAC FAILURE CONGESTIVE [None]
  - CHILLS [None]
  - DIARRHOEA [None]
  - PYREXIA [None]
  - VOMITING [None]
